FAERS Safety Report 9407201 (Version 1)
Quarter: 2013Q3

REPORT INFORMATION
  Report Type: Spontaneous
  Country: FR (occurrence: FR)
  Receive Date: 20130718
  Receipt Date: 20130718
  Transmission Date: 20140515
  Serious: Yes (Other)
  Sender: FDA-Public Use
  Company Number: FR-JNJFOC-20130708270

PATIENT
  Age: 34 Year
  Sex: Male
  Weight: 85 kg

DRUGS (3)
  1. REMICADE [Suspect]
     Indication: SPONDYLITIS
     Dosage: 6TH INFUSION
     Route: 042
  2. REMICADE [Suspect]
     Indication: SPONDYLITIS
     Dosage: 8TH INFUSION
     Route: 042
  3. REMICADE [Suspect]
     Indication: SPONDYLITIS
     Route: 042
     Dates: start: 200908

REACTIONS (4)
  - Psoriasis [Not Recovered/Not Resolved]
  - Hypertension [Unknown]
  - Uveitis [Unknown]
  - Dry eye [Unknown]
